FAERS Safety Report 4350171-0 (Version None)
Quarter: 2004Q2

REPORT INFORMATION
  Report Type: 
  Country: None (occurrence: None)
  Receive Date: 20040428
  Receipt Date: 20040428
  Transmission Date: 20050107
  Serious: Yes (Hospitalization)
  Sender: FDA-Public Use
  Company Number: None

PATIENT
  Age: 51 Year
  Sex: Male
  Weight: 72.5755 kg

DRUGS (25)
  1. ASPIRIN [Suspect]
     Indication: PROPHYLAXIS
     Dosage: 81 MG DAILY PTA
  2. LISINOPRIL [Suspect]
     Indication: DIABETES MELLITUS
     Dosage: 5 MG DAILY
     Dates: start: 20030101, end: 20040205
  3. ACCU-CHEK COMFORT CV(GLUCOSE) TEST STRIP [Concomitant]
  4. ALCOHOL PREP PAD [Concomitant]
  5. AMOXICILLIN [Concomitant]
  6. ARTIFICAL TEARS POLYVINYL ALCHOLOL [Concomitant]
  7. ASPIRIN [Concomitant]
  8. ATENOLOL [Concomitant]
  9. CHLORPHENIRAMINE MALEATE [Concomitant]
  10. CREON [Concomitant]
  11. CYCLOBENZAPRINE HCL [Concomitant]
  12. FLUNISOLIDE [Concomitant]
  13. FLUOXETINE HCL [Concomitant]
  14. GEMFIBROZIL [Concomitant]
  15. HYDROCODONE 10/ ACETAMINOPHEN [Concomitant]
  16. HUMULIN N [Concomitant]
  17. INSULIN SYRINGE [Concomitant]
  18. LANCET, TECHLITE [Concomitant]
  19. LISINOPRIL [Concomitant]
  20. LITHIUM CARBONATE [Concomitant]
  21. METHADONE HCL [Concomitant]
  22. QUETIAPINE FUMARATE [Concomitant]
  23. RANITIDINE HCL [Concomitant]
  24. SALSALATE [Concomitant]
  25. TABLET CUTTER [Concomitant]

REACTIONS (3)
  - ANAEMIA [None]
  - DIZZINESS [None]
  - FALL [None]
